FAERS Safety Report 4879182-3 (Version None)
Quarter: 2006Q1

REPORT INFORMATION
  Report Type: 
  Country: None (occurrence: None)
  Receive Date: 20060112
  Receipt Date: 20051228
  Transmission Date: 20060701
  Serious: Yes (Hospitalization)
  Sender: FDA-Public Use
  Company Number: FR-ROCHE-430327

PATIENT
  Age: 67 Year
  Sex: Female

DRUGS (5)
  1. INTERFERON ALFA [Suspect]
     Indication: MALIGNANT MELANOMA
     Dosage: DAY 11 AND 18
     Route: 058
  2. DACARBAZINE [Suspect]
     Indication: MALIGNANT MELANOMA
     Dosage: ON DAY 1
     Route: 058
  3. THYMOSIN ALPHA 1 [Suspect]
     Indication: MALIGNANT MELANOMA
     Dosage: DAYS 8-11 AND 15-18
     Route: 058
  4. LANSOPRAZOLE [Concomitant]
     Dates: start: 20051031
  5. SPIRONOLACTONE [Concomitant]
     Indication: ASCITES
     Dates: start: 20051031

REACTIONS (1)
  - PERIPHERAL ISCHAEMIA [None]
